FAERS Safety Report 5844639-5 (Version None)
Quarter: 2008Q3

REPORT INFORMATION
  Report Type: 
  Country: None (occurrence: None)
  Receive Date: 20080814
  Receipt Date: 20080805
  Transmission Date: 20090109
  Serious: Yes (Other)
  Sender: FDA-Public Use
  Company Number: NO-JNJFOC-20080800919

PATIENT
  Age: 64 Year
  Sex: Female

DRUGS (4)
  1. INFLIXIMAB [Suspect]
     Indication: RHEUMATOID ARTHRITIS
     Route: 042
  2. PREDNISONE TAB [Concomitant]
  3. CALCIUM [Concomitant]
  4. UNSPECIFIED ALLERGY MEDICATION [Concomitant]

REACTIONS (1)
  - ANKLE FRACTURE [None]
